FAERS Safety Report 15608578 (Version 2)
Quarter: 2018Q4

REPORT INFORMATION
  Report Type: Spontaneous
  Country: US (occurrence: US)
  Receive Date: 20181112
  Receipt Date: 20181121
  Transmission Date: 20190205
  Serious: Yes (Other)
  Sender: FDA-Public Use
  Company Number: US-SA-2018SA306251

PATIENT
  Age: 50 Year
  Sex: Male

DRUGS (5)
  1. IRINOTECAN [Suspect]
     Active Substance: IRINOTECAN
     Indication: PANCREATIC CARCINOMA
     Dosage: UNK UNK, QCY   2 CYCLICAL
  2. FOLINIC ACID [Suspect]
     Active Substance: LEUCOVORIN
     Indication: PANCREATIC CARCINOMA
     Dosage: UNK, QCY
  3. FLUOROURACIL. [Suspect]
     Active Substance: FLUOROURACIL
     Indication: PANCREATIC CARCINOMA
     Dosage: UNK UNK, QCY
  4. FENTANYL. [Suspect]
     Active Substance: FENTANYL
     Indication: PAIN
     Dosage: UNK UNK, UNK
     Route: 062
  5. OXALIPLATIN. [Suspect]
     Active Substance: OXALIPLATIN
     Indication: PANCREATIC CARCINOMA
     Dosage: UNK UNK, QCY  2 CYCLICAL

REACTIONS (8)
  - Diarrhoea [Recovering/Resolving]
  - Pain [Recovering/Resolving]
  - Skin discolouration [Recovering/Resolving]
  - Nicotinic acid deficiency [Recovering/Resolving]
  - Encephalopathy [Recovering/Resolving]
  - Dementia [Recovering/Resolving]
  - Dehydration [Recovering/Resolving]
  - Weight decreased [Recovering/Resolving]
